FAERS Safety Report 4926273-4 (Version None)
Quarter: 2006Q1

REPORT INFORMATION
  Report Type: 
  Country: None (occurrence: None)
  Receive Date: 20060228
  Receipt Date: 20051205
  Transmission Date: 20060701
  Serious: No
  Sender: FDA-Public Use
  Company Number: US-GLAXOSMITHKLINE-A0586897A

PATIENT
  Age: 24 Year
  Sex: Female
  Weight: 43.6 kg

DRUGS (2)
  1. LAMICTAL [Suspect]
     Indication: DRUG USE FOR UNKNOWN INDICATION
     Dosage: 25MG PER DAY
     Route: 048
  2. WELLBUTRIN XL [Concomitant]
     Dosage: 150MG UNKNOWN
     Route: 048

REACTIONS (1)
  - LIP BLISTER [None]
